FAERS Safety Report 5510433-8 (Version None)
Quarter: 2007Q4

REPORT INFORMATION
  Report Type: 
  Country: None (occurrence: None)
  Receive Date: 20071108
  Receipt Date: 20071028
  Transmission Date: 20080405
  Serious: Yes (Other)
  Sender: FDA-Public Use
  Company Number: US-PFIZER INC-2007092632

PATIENT
  Age: 64 Year
  Sex: Male
  Weight: 90 kg

DRUGS (2)
  1. CHANTIX [Suspect]
     Indication: SMOKING CESSATION THERAPY
  2. CARDIOVASCULAR SYSTEM DRUGS [Concomitant]

REACTIONS (2)
  - FATIGUE [None]
  - HYPERSOMNIA [None]
